FAERS Safety Report 18044551 (Version 1)
Quarter: 2020Q3

REPORT INFORMATION
  Report Type: Spontaneous
  Country: US (occurrence: US)
  Receive Date: 20200720
  Receipt Date: 20200720
  Transmission Date: 20201103
  Serious: Yes (Hospitalization)
  Sender: FDA-Public Use
  Company Number: US-ALKERMES INC.-ALK-2020-002922

PATIENT
  Age: 16 Year
  Sex: Female

DRUGS (2)
  1. ARISTADA [Suspect]
     Active Substance: ARIPIPRAZOLE LAUROXIL
     Indication: MAJOR DEPRESSION
     Dosage: 662 MILLIGRAM, EVERY 28 DAYS
     Route: 030
  2. ARISTADA [Suspect]
     Active Substance: ARIPIPRAZOLE LAUROXIL
     Indication: PSYCHOTIC SYMPTOM
     Dosage: 662 MILLIGRAM, EVERY 28 DAYS
     Route: 030
     Dates: start: 20200219, end: 20200219

REACTIONS (4)
  - Product use issue [Recovered/Resolved]
  - Drug ineffective for unapproved indication [Unknown]
  - Off label use [Recovered/Resolved]
  - Hospitalisation [Not Recovered/Not Resolved]

NARRATIVE: CASE EVENT DATE: 2020
